FAERS Safety Report 7301102-2 (Version None)
Quarter: 2010Q4

REPORT INFORMATION
  Report Type: 
  Country: None (occurrence: None)
  Receive Date: 20101229
  Receipt Date: 20101028
  Transmission Date: 20110411
  Serious: No
  Sender: FDA-Public Use
  Company Number: 1000017075

PATIENT
  Age: 72 Year
  Sex: Male

DRUGS (3)
  1. BYSTOLIC [Suspect]
     Indication: HYPERTENSION
     Dosage: 5 MG (5 MG, 1 IN 1 D), ORAL
     Route: 048
     Dates: start: 20100401
  2. SULAR (NISOLDIPINE) (NISOLDIPINE) [Concomitant]
  3. JANUVIA (SITAGLIPTIN PHOSPHATE) (SITAGLIPTIN PHOSPHATE) [Concomitant]

REACTIONS (1)
  - FATIGUE [None]
